FAERS Safety Report 5109879-1 (Version None)
Quarter: 2006Q3

REPORT INFORMATION
  Report Type: 
  Country: None (occurrence: None)
  Receive Date: 20060919
  Receipt Date: 20060919
  Transmission Date: 20061208
  Serious: Yes (Hospitalization)
  Sender: FDA-Public Use
  Company Number: None

PATIENT
  Age: 22 Year
  Sex: Male
  Weight: 89 kg

DRUGS (6)
  1. FELBAMATE [Suspect]
     Indication: EPILEPSY
     Dosage: 2800 MG 1 TID PO
     Route: 048
  2. DILANTIN [Concomitant]
  3. PREDNISONE [Concomitant]
  4. LUVOUX [Concomitant]
  5. NORVASC [Concomitant]
  6. LASIX [Concomitant]

REACTIONS (2)
  - NEPHROSCLEROSIS [None]
  - NEPHROTIC SYNDROME [None]
